FAERS Safety Report 10214671 (Version 2)
Quarter: 2014Q3

REPORT INFORMATION
  Report Type: Spontaneous
  Country: US (occurrence: US)
  Receive Date: 20140603
  Receipt Date: 20140714
  Transmission Date: 20150326
  Serious: Yes (Hospitalization)
  Sender: FDA-Public Use
  Company Number: US-B.I. PHARMACEUTICALS,INC./RIDGEFIELD-2014-BI-24024BP

PATIENT
  Age: 69 Year
  Sex: Female
  Weight: 61 kg

DRUGS (10)
  1. XANAX [Concomitant]
     Active Substance: ALPRAZOLAM
     Indication: ANXIETY
     Route: 048
  2. VITAMIN D2 [Concomitant]
     Active Substance: ERGOCALCIFEROL
     Dosage: 1.25 MG
     Route: 048
  3. BYSTOLIC [Concomitant]
     Active Substance: NEBIVOLOL HYDROCHLORIDE
     Indication: HYPERTENSION
     Dosage: 5 MG
     Route: 048
  4. ATROVENT [Suspect]
     Active Substance: IPRATROPIUM BROMIDE
     Indication: BRONCHITIS CHRONIC
     Dosage: 68 MCG
     Route: 055
  5. HCTZ [Concomitant]
     Active Substance: HYDROCHLOROTHIAZIDE
     Indication: HYPERTENSION
     Dosage: 25 MG
     Route: 048
  6. PAXIL [Concomitant]
     Active Substance: PAROXETINE HYDROCHLORIDE
     Indication: DEPRESSION
  7. ADVAIR HFA [Concomitant]
     Active Substance: FLUTICASONE PROPIONATE\SALMETEROL XINAFOATE
     Indication: BRONCHITIS CHRONIC
     Dosage: FORMULATION: INHALATION AEROSOL; STRENGTH: 25/500 MG; DAILY DOSE: 50/1000 MG
     Route: 055
  8. LOVASTATIN. [Concomitant]
     Active Substance: LOVASTATIN
     Indication: BLOOD CHOLESTEROL INCREASED
     Dosage: 20 MG
     Route: 048
  9. PAXIL [Concomitant]
     Active Substance: PAROXETINE HYDROCHLORIDE
     Indication: ANXIETY
     Dosage: 5 MG
     Route: 048
  10. ADVAIR HFA [Concomitant]
     Active Substance: FLUTICASONE PROPIONATE\SALMETEROL XINAFOATE
     Indication: EMPHYSEMA

REACTIONS (3)
  - Joint dislocation pathological [Recovered/Resolved]
  - Palpitations [Recovered/Resolved]
  - Staphylococcal infection [Not Recovered/Not Resolved]

NARRATIVE: CASE EVENT DATE: 20130422
